FAERS Safety Report 5379834-5 (Version None)
Quarter: 2007Q3

REPORT INFORMATION
  Report Type: 
  Country: None (occurrence: None)
  Receive Date: 20070706
  Receipt Date: 20070627
  Transmission Date: 20080115
  Serious: Yes (Other)
  Sender: FDA-Public Use
  Company Number: US-JNJFOC-20070606451

PATIENT
  Sex: Female
  Weight: 71.67 kg

DRUGS (5)
  1. REMICADE [Suspect]
     Route: 042
  2. REMICADE [Suspect]
     Indication: JUVENILE ARTHRITIS
     Route: 042
  3. FOLIC [Concomitant]
  4. METHOTREXATE [Concomitant]
  5. MULTI-VITAMIN [Concomitant]

REACTIONS (2)
  - DYSGRAPHIA [None]
  - VISION BLURRED [None]
